FAERS Safety Report 4700710-2 (Version None)
Quarter: 2005Q2

REPORT INFORMATION
  Report Type: 
  Country: None (occurrence: None)
  Receive Date: 20050627
  Receipt Date: 20050610
  Transmission Date: 20051028
  Serious: Yes (Hospitalization)
  Sender: FDA-Public Use
  Company Number: 215237

PATIENT
  Age: 75 Year
  Sex: Male
  Weight: 50 kg

DRUGS (9)
  1. RITUXAN [Suspect]
     Indication: NON-HODGKIN'S LYMPHOMA
     Dosage: 600 MG, INTRAVENOUS
     Route: 042
     Dates: start: 20041206, end: 20050223
  2. POLARAMINE [Concomitant]
  3. SOLU-MEDROL (METHYLPREDNISOLONE SODIUM SICCINATE) [Concomitant]
  4. ALLOPURINOL [Concomitant]
  5. PROMAC (JAPAN) (POLAPREZINIC) [Concomitant]
  6. MUCOSTA 9REGAMIPIDE) [Concomitant]
  7. SEROTONE (AZASETRON HYDROCHLORIDE) [Concomitant]
  8. EPINEPHRINE [Concomitant]
  9. THROMBIN LOCAL SOLUTION [Concomitant]

REACTIONS (7)
  - ABDOMINAL PAIN UPPER [None]
  - CHEST DISCOMFORT [None]
  - DIARRHOEA [None]
  - GASTRIC ULCER HAEMORRHAGE [None]
  - HAEMOGLOBIN DECREASED [None]
  - PYREXIA [None]
  - WHITE BLOOD CELL COUNT DECREASED [None]
